FAERS Safety Report 21025709 (Version 2)
Quarter: 2022Q3

REPORT INFORMATION
  Report Type: Report from Study
  Country: GR (occurrence: GR)
  Receive Date: 20220630
  Receipt Date: 20220731
  Transmission Date: 20221026
  Serious: Yes (Hospitalization)
  Sender: FDA-Public Use
  Company Number: GR-ABBVIE-22K-066-4449087-00

PATIENT
  Sex: Female

DRUGS (2)
  1. CARBIDOPA\LEVODOPA [Suspect]
     Active Substance: CARBIDOPA\LEVODOPA
     Indication: Parkinson^s disease
     Dosage: MORNING DOSE: 9.7 ML; CONTINUOUS RATE: 2.2 ML/H; EXTRA DOSE: 2.2 ML
     Route: 050
     Dates: start: 20190124
  2. CARBIDOPA\LEVODOPA [Suspect]
     Active Substance: CARBIDOPA\LEVODOPA
     Dosage: MORNING DOSE: 9.7 ML; CONTINUOUS RATE: 2.2 ML/H; EXTRA DOSE: 2.2 ML
     Route: 050

REACTIONS (5)
  - Tremor [Recovered/Resolved]
  - Anxiety [Not Recovered/Not Resolved]
  - Constipation [Unknown]
  - Functional gastrointestinal disorder [Unknown]
  - Hyperkinesia [Recovered/Resolved]
